FAERS Safety Report 12574665 (Version 1)
Quarter: 2016Q3

REPORT INFORMATION
  Report Type: Spontaneous
  Country: US (occurrence: US)
  Receive Date: 20160720
  Receipt Date: 20160720
  Transmission Date: 20161109
  Serious: Yes (Hospitalization, Other)
  Sender: FDA-Public Use
  Company Number: US-PFIZER INC-2016342939

PATIENT
  Age: 76 Year
  Sex: Female
  Weight: 80.29 kg

DRUGS (2)
  1. LYRICA [Suspect]
     Active Substance: PREGABALIN
     Indication: BURNING SENSATION
     Dosage: 100 MG, 2X/DAY
     Route: 048
  2. LYRICA [Suspect]
     Active Substance: PREGABALIN
     Indication: PAIN IN EXTREMITY

REACTIONS (21)
  - Asthenia [Not Recovered/Not Resolved]
  - Vision blurred [Unknown]
  - Visual impairment [Unknown]
  - Fall [Unknown]
  - Head injury [Unknown]
  - Contusion [Unknown]
  - Balance disorder [Unknown]
  - Pneumonia [Recovered/Resolved]
  - Lymphoma [Unknown]
  - Dry mouth [Not Recovered/Not Resolved]
  - Chest discomfort [Unknown]
  - Musculoskeletal chest pain [Unknown]
  - Chest injury [Recovering/Resolving]
  - Arterial haemorrhage [Unknown]
  - Thrombosis [Unknown]
  - Weight increased [Unknown]
  - Joint injury [Unknown]
  - Rash generalised [Unknown]
  - Peripheral artery aneurysm [Unknown]
  - Dysphonia [Not Recovered/Not Resolved]
  - Muscular weakness [Unknown]

NARRATIVE: CASE EVENT DATE: 2015
